FAERS Safety Report 13952640 (Version 2)
Quarter: 2018Q1

REPORT INFORMATION
  Report Type: Spontaneous
  Country: FR (occurrence: FR)
  Receive Date: 20170911
  Receipt Date: 20180321
  Transmission Date: 20180508
  Serious: Yes (Hospitalization)
  Sender: FDA-Public Use
  Company Number: FR-ROCHE-1988931

PATIENT
  Age: 19 Year
  Sex: Female

DRUGS (8)
  1. ROCEPHINE [Suspect]
     Active Substance: CEFTRIAXONE SODIUM
     Indication: PYELONEPHRITIS
     Route: 042
     Dates: start: 20170705, end: 20170707
  2. KEPPRA [Concomitant]
     Active Substance: LEVETIRACETAM
  3. PROFENID [Suspect]
     Active Substance: KETOPROFEN
     Indication: PRODUCT USED FOR UNKNOWN INDICATION
     Route: 048
     Dates: start: 20170705, end: 20170705
  4. AMIKACINE [Suspect]
     Active Substance: AMIKACIN
     Indication: PYELONEPHRITIS
     Route: 042
     Dates: start: 20170705, end: 20170705
  5. PARACETAMOL [Suspect]
     Active Substance: ACETAMINOPHEN
     Indication: PAIN
     Dosage: 4 TO 6 G/ DAY
     Route: 048
     Dates: start: 20170629, end: 20170707
  6. HYPNOVEL (FRANCE) [Concomitant]
     Active Substance: MIDAZOLAM HYDROCHLORIDE
  7. AMOXICILLINE [Suspect]
     Active Substance: AMOXICILLIN
     Indication: PYELONEPHRITIS
     Route: 042
     Dates: start: 20170629, end: 20170705
  8. MORPHINE [Concomitant]
     Active Substance: MORPHINE

REACTIONS (2)
  - Hepatitis [Recovered/Resolved]
  - Nephritis [Recovered/Resolved]

NARRATIVE: CASE EVENT DATE: 20170629
